FAERS Safety Report 5101157-X (Version None)
Quarter: 2006Q3

REPORT INFORMATION
  Report Type: 
  Country: None (occurrence: None)
  Receive Date: 20060911
  Receipt Date: 20060901
  Transmission Date: 20061208
  Serious: Yes (Death, Hospitalization, Other)
  Sender: FDA-Public Use
  Company Number: US-JNJFOC-20060801430

PATIENT
  Sex: Female
  Weight: 59.42 kg

DRUGS (10)
  1. REMICADE [Suspect]
  2. REMICADE [Suspect]
     Indication: GRAFT VERSUS HOST DISEASE
  3. REMICADE [Suspect]
     Indication: CROHN'S DISEASE
  4. IMURAN [Suspect]
     Indication: DRUG USE FOR UNKNOWN INDICATION
  5. CASPOFUNGIN [Concomitant]
  6. AMPHOTERICIN B [Concomitant]
  7. OCTREOTIDE ACETATE [Concomitant]
  8. SOLU-MEDROL [Concomitant]
  9. GM-CSF [Concomitant]
  10. SULFASALAZINE [Concomitant]

REACTIONS (9)
  - ACUTE MYELOID LEUKAEMIA [None]
  - ASPERGILLOSIS [None]
  - BONE MARROW TRANSPLANT REJECTION [None]
  - BRAIN HERNIATION [None]
  - CEREBROVASCULAR ACCIDENT [None]
  - FUNGAL SEPSIS [None]
  - GRAFT VERSUS HOST DISEASE [None]
  - LEUKOPENIA [None]
  - PANCYTOPENIA [None]
